FAERS Safety Report 9641016 (Version 1)
Quarter: 2013Q4

REPORT INFORMATION
  Report Type: Report from Study
  Country: US (occurrence: US)
  Receive Date: 20131023
  Receipt Date: 20131023
  Transmission Date: 20140711
  Serious: No
  Sender: FDA-Public Use
  Company Number: US-ABBVIE-13P-163-1078526-00

PATIENT
  Age: 43 Year
  Sex: Female

DRUGS (6)
  1. LUPRON DEPOT [Suspect]
     Indication: ENDOMETRIOSIS
     Dates: start: 20130325
  2. LUPRON DEPOT [Suspect]
     Indication: UTERINE LEIOMYOMA
  3. LUPRON DEPOT [Suspect]
     Indication: VAGINAL HAEMORRHAGE
  4. IRON [Concomitant]
     Indication: MINERAL SUPPLEMENTATION
     Dosage: PILL
     Route: 048
  5. ADALAT [Concomitant]
     Indication: HYPERTENSION
     Route: 048
  6. ATENOLOL [Concomitant]
     Indication: HYPERTENSION
     Route: 048

REACTIONS (1)
  - Vaginal haemorrhage [Recovering/Resolving]
